FAERS Safety Report 6502803-6 (Version None)
Quarter: 2009Q4

REPORT INFORMATION
  Report Type: 
  Country: None (occurrence: None)
  Receive Date: 20091217
  Receipt Date: 20091209
  Transmission Date: 20100525
  Serious: Yes (Other)
  Sender: FDA-Public Use
  Company Number: FR-ASTRAZENECA-2009SE03312

PATIENT
  Sex: Female

DRUGS (1)
  1. ARIMIDEX [Suspect]
     Indication: BREAST CANCER
     Route: 048
     Dates: start: 20060801

REACTIONS (10)
  - CHOLECYSTITIS ACUTE [None]
  - HEADACHE [None]
  - INFLUENZA [None]
  - NAUSEA [None]
  - OTITIS MEDIA [None]
  - TENDONITIS [None]
  - THROMBOPHLEBITIS SUPERFICIAL [None]
  - TOOTH FRACTURE [None]
  - TOOTH INJURY [None]
  - WRIST FRACTURE [None]
